FAERS Safety Report 19886602 (Version 2)
Quarter: 2021Q4

REPORT INFORMATION
  Report Type: Report from Study
  Country: US (occurrence: US)
  Receive Date: 20210927
  Receipt Date: 20211011
  Transmission Date: 20220304
  Serious: Yes (Hospitalization, Other)
  Sender: FDA-Public Use
  Company Number: US-CLOVIS ONCOLOGY-CLO-2021-001416

PATIENT
  Age: 81 Year
  Sex: Female

DRUGS (1)
  1. RUBRACA [Suspect]
     Active Substance: RUCAPARIB CAMSYLATE
     Indication: Product used for unknown indication
     Dosage: 600 MILLIGRAM, BID
     Route: 048
     Dates: start: 20210909, end: 20210912

REACTIONS (5)
  - Unresponsive to stimuli [Unknown]
  - Blood glucose decreased [Unknown]
  - Breath sounds abnormal [Unknown]
  - Blood urine present [Unknown]
  - Urinary tract infection [Unknown]

NARRATIVE: CASE EVENT DATE: 20210901
